FAERS Safety Report 10854887 (Version 1)
Quarter: 2015Q1

REPORT INFORMATION
  Report Type: Spontaneous
  Country: US (occurrence: None)
  Receive Date: 20150218
  Receipt Date: 20150218
  Transmission Date: 20150721
  Serious: Yes (Life-Threatening, Hospitalization, Disabling, Other)
  Sender: FDA-Public Use
  Company Number: None

PATIENT
  Age: 58 Year
  Sex: Male
  Weight: 99.79 kg

DRUGS (2)
  1. TIZANIDINE (TIZANIDINE) [Suspect]
     Active Substance: TIZANIDINE
     Indication: MUSCLE RELAXANT THERAPY
     Dosage: 12 MG AT BEDTIME (3 TABS) AT BEDTIME TAKEN BY MOUTH
     Route: 048
  2. CIPRO GENERIC CIPROFLOXEN [Suspect]
     Active Substance: CIPROFLOXACIN HYDROCHLORIDE
     Indication: GASTROINTESTINAL TRACT IRRITATION
     Dosage: 2 TABS THREE TIMES DAILY TAKEN BY MOUTH
     Route: 048
     Dates: start: 20110812, end: 20110812

REACTIONS (10)
  - Renal impairment [None]
  - Brain injury [None]
  - Heart rate decreased [None]
  - Post-traumatic stress disorder [None]
  - Drug interaction [None]
  - Muscle fatigue [None]
  - Acute kidney injury [None]
  - Hypotension [None]
  - Multi-organ disorder [None]
  - Coma [None]

NARRATIVE: CASE EVENT DATE: 20110812
